FAERS Safety Report 15346911 (Version 3)
Quarter: 2022Q1

REPORT INFORMATION
  Report Type: Report from Study
  Country: AR (occurrence: AR)
  Receive Date: 20180904
  Receipt Date: 20220328
  Transmission Date: 20220423
  Serious: Yes (Hospitalization, Other)
  Sender: FDA-Public Use
  Company Number: PHHY2018AR086020

PATIENT
  Sex: Male

DRUGS (4)
  1. SANDOSTATIN LAR DEPOT [Suspect]
     Active Substance: OCTREOTIDE ACETATE
     Indication: Acromegaly
     Dosage: 30 MG, QMO
     Route: 065
     Dates: start: 20151201
  2. SANDOSTATIN LAR DEPOT [Suspect]
     Active Substance: OCTREOTIDE ACETATE
     Dosage: 40 MG (EVERY 28 DAYS)
     Route: 030
     Dates: start: 20151201
  3. SANDOSTATIN LAR DEPOT [Suspect]
     Active Substance: OCTREOTIDE ACETATE
  4. VITAMINS NOS [Concomitant]
     Active Substance: VITAMINS
     Indication: Product used for unknown indication
     Dosage: UNK
     Route: 065

REACTIONS (15)
  - Malaise [Recovered/Resolved]
  - Syncope [Recovered/Resolved]
  - Seizure [Unknown]
  - Speech disorder [Recovered/Resolved]
  - Infection [Unknown]
  - Deafness unilateral [Not Recovered/Not Resolved]
  - Blindness [Not Recovered/Not Resolved]
  - Optic nerve compression [Unknown]
  - Jaw disorder [Unknown]
  - Neoplasm progression [Not Recovered/Not Resolved]
  - Device failure [Not Recovered/Not Resolved]
  - Tooth loss [Unknown]
  - Urinary incontinence [Unknown]
  - Somnolence [Unknown]
  - Drug ineffective [Recovering/Resolving]
